FAERS Safety Report 11715332 (Version 1)
Quarter: 2015Q4

REPORT INFORMATION
  Report Type: Spontaneous
  Country: BR (occurrence: BR)
  Receive Date: 20151109
  Receipt Date: 20151109
  Transmission Date: 20160304
  Serious: Yes (Other)
  Sender: FDA-Public Use
  Company Number: BR-JNJFOC-20151106030

PATIENT
  Sex: Female
  Weight: 56 kg

DRUGS (3)
  1. FERROUS SULFATE [Concomitant]
     Active Substance: FERROUS SULFATE\FERROUS SULFATE, DRIED
     Indication: ANAEMIA
     Route: 065
  2. ORTHO EVRA [Suspect]
     Active Substance: ETHINYL ESTRADIOL\NORELGESTROMIN
     Indication: MENSTRUATION IRREGULAR
     Route: 062
     Dates: start: 2006
  3. ORTHO EVRA [Suspect]
     Active Substance: ETHINYL ESTRADIOL\NORELGESTROMIN
     Indication: CONTRACEPTION
     Route: 062
     Dates: start: 2006

REACTIONS (7)
  - Anaemia [Recovered/Resolved]
  - Product quality issue [Unknown]
  - Off label use [Not Recovered/Not Resolved]
  - Wrong technique in product usage process [Unknown]
  - Product use issue [Not Recovered/Not Resolved]
  - Intercepted medication error [Unknown]
  - Therapeutic response unexpected [Unknown]

NARRATIVE: CASE EVENT DATE: 2006
